FAERS Safety Report 5998207-5 (Version None)
Quarter: 2008Q4

REPORT INFORMATION
  Report Type: 
  Country: None (occurrence: None)
  Receive Date: 20081213
  Receipt Date: 20080630
  Transmission Date: 20090506
  Serious: No
  Sender: FDA-Public Use
  Company Number: US-AMGEN-KDL291977

PATIENT
  Sex: Male

DRUGS (4)
  1. ENBREL [Suspect]
     Indication: RHEUMATOID ARTHRITIS
     Route: 058
     Dates: start: 20080608
  2. METHOTREXATE [Concomitant]
     Route: 048
  3. DURAGESIC-100 [Concomitant]
  4. OXYCONTIN [Concomitant]

REACTIONS (7)
  - DIARRHOEA [None]
  - FATIGUE [None]
  - HYPERHIDROSIS [None]
  - INJECTION SITE HAEMATOMA [None]
  - NAUSEA [None]
  - SUFFOCATION FEELING [None]
  - TREMOR [None]
